FAERS Safety Report 7052795-9 (Version None)
Quarter: 2010Q4

REPORT INFORMATION
  Report Type: 
  Country: None (occurrence: None)
  Receive Date: 20101012
  Receipt Date: 20101006
  Transmission Date: 20110411
  Serious: Yes (Other)
  Sender: FDA-Public Use
  Company Number: 2010SP053443

PATIENT
  Age: 30 Year
  Sex: Female

DRUGS (1)
  1. INTERFERON ALFA [Suspect]
     Indication: HEPATITIS B

REACTIONS (2)
  - ACTIVITIES OF DAILY LIVING IMPAIRED [None]
  - CHRONIC INFLAMMATORY DEMYELINATING POLYRADICULONEUROPATHY [None]
